FAERS Safety Report 21349846 (Version 1)
Quarter: 2022Q3

REPORT INFORMATION
  Report Type: Spontaneous
  Country: US (occurrence: None)
  Receive Date: 20220916
  Receipt Date: 20220916
  Transmission Date: 20221026
  Serious: Yes (Other)
  Sender: FDA-Public Use
  Company Number: None

PATIENT
  Sex: Male
  Weight: 83.23 kg

DRUGS (7)
  1. CAPECITABINE [Suspect]
     Active Substance: CAPECITABINE
     Indication: Appendix cancer
     Dosage: OTHER FREQUENCY : BID 14 ON/7 OFF;?
     Route: 048
     Dates: start: 20210527
  2. VITAMINS [Concomitant]
     Active Substance: VITAMINS
  3. ONDANSETRON [Concomitant]
     Active Substance: ONDANSETRON
  4. VITAMIN D3 [Concomitant]
     Active Substance: CHOLECALCIFEROL
  5. XARELTO [Concomitant]
     Active Substance: RIVAROXABAN
  6. AVASTIN [Concomitant]
     Active Substance: BEVACIZUMAB
  7. Pfizer booster [Concomitant]

REACTIONS (1)
  - COVID-19 [None]
